FAERS Safety Report 8855657 (Version 1)
Quarter: 2012Q4

REPORT INFORMATION
  Report Type: Spontaneous
  Country: US (occurrence: None)
  Receive Date: 20121019
  Receipt Date: 20121019
  Transmission Date: 20130627
  Serious: Yes (Life-Threatening, Other)
  Sender: FDA-Public Use
  Company Number: None

PATIENT
  Age: 53 Year
  Sex: Female
  Weight: 71.22 kg

DRUGS (1)
  1. CELESTONE [Suspect]
     Indication: BURSITIS
     Dosage: injection of 1 ml into each ab
     Dates: start: 20121002, end: 20121002

REACTIONS (4)
  - Dyspnoea [None]
  - Tachycardia [None]
  - Blood pressure increased [None]
  - Treatment noncompliance [None]
